FAERS Safety Report 23992874 (Version 1)
Quarter: 2024Q2

REPORT INFORMATION
  Report Type: Spontaneous
  Country: US (occurrence: US)
  Receive Date: 20240620
  Receipt Date: 20240620
  Transmission Date: 20240716
  Serious: No
  Sender: FDA-Public Use
  Company Number: US-ABBVIE-5806032

PATIENT
  Sex: Female

DRUGS (1)
  1. VRAYLAR [Suspect]
     Active Substance: CARIPRAZINE
     Indication: Bipolar II disorder
     Route: 048
     Dates: start: 202406

REACTIONS (4)
  - Illness [Unknown]
  - Dizziness postural [Unknown]
  - Nausea [Unknown]
  - Dysstasia [Unknown]

NARRATIVE: CASE EVENT DATE: 20240601
